FAERS Safety Report 19153231 (Version 1)
Quarter: 2021Q2

REPORT INFORMATION
  Report Type: Spontaneous
  Country: US (occurrence: US)
  Receive Date: 20210418
  Receipt Date: 20210418
  Transmission Date: 20210717
  Serious: No
  Sender: FDA-Public Use
  Company Number: None

PATIENT
  Age: 63 Year
  Sex: Male
  Weight: 85.5 kg

DRUGS (14)
  1. TIZANIDINE. [Concomitant]
     Active Substance: TIZANIDINE
  2. VITIMIN B?12 [Concomitant]
  3. NORCO [Concomitant]
     Active Substance: ACETAMINOPHEN\HYDROCODONE BITARTRATE
  4. ALENDRONATE SODIUM. [Suspect]
     Active Substance: ALENDRONATE SODIUM
     Indication: BONE LOSS
     Dosage: ?          QUANTITY:1 DF DOSAGE FORM;OTHER FREQUENCY:ONCE WEEKLY;?
     Route: 048
     Dates: start: 20210310, end: 20210324
  5. LOTENSIN [Concomitant]
     Active Substance: BENAZEPRIL HYDROCHLORIDE
  6. AMITRIPTYLINE [Concomitant]
     Active Substance: AMITRIPTYLINE
  7. AMBIEN [Concomitant]
     Active Substance: ZOLPIDEM TARTRATE
  8. GABAPENTIN. [Concomitant]
     Active Substance: GABAPENTIN
  9. ROSUSTATIN [Concomitant]
  10. ADVIL [Concomitant]
     Active Substance: IBUPROFEN
  11. VITIMIN D [Concomitant]
  12. ASPIRIN. [Concomitant]
     Active Substance: ASPIRIN
  13. MELOXICAM. [Concomitant]
     Active Substance: MELOXICAM
  14. ZOLOFT [Concomitant]
     Active Substance: SERTRALINE HYDROCHLORIDE

REACTIONS (2)
  - Arthralgia [None]
  - Myalgia [None]

NARRATIVE: CASE EVENT DATE: 20210315
